FAERS Safety Report 5285620-7 (Version None)
Quarter: 2007Q1

REPORT INFORMATION
  Report Type: 
  Country: None (occurrence: None)
  Receive Date: 20070116
  Receipt Date: 20061129
  Transmission Date: 20070707
  Serious: No
  Sender: FDA-Public Use
  Company Number: 2006SP004201

PATIENT
  Age: 76 Year
  Sex: Female
  Weight: 87.5442 kg

DRUGS (7)
  1. LUNESTA [Suspect]
     Indication: INSOMNIA
     Dosage: SEE IMAGE
     Route: 048
     Dates: start: 20061127, end: 20061127
  2. LUNESTA [Suspect]
     Indication: INSOMNIA
     Dosage: SEE IMAGE
     Route: 048
     Dates: start: 20061128
  3. LOVASTATIN [Concomitant]
  4. SINGULAIR [Concomitant]
  5. ATENOLOL [Concomitant]
  6. COZAAR [Concomitant]
  7. LORAZEPAM [Concomitant]

REACTIONS (2)
  - INSOMNIA [None]
  - RESTLESS LEGS SYNDROME [None]
